FAERS Safety Report 11620497 (Version 1)
Quarter: 2015Q4

REPORT INFORMATION
  Report Type: Spontaneous
  Country: US (occurrence: US)
  Receive Date: 20151012
  Receipt Date: 20151012
  Transmission Date: 20160304
  Serious: No
  Sender: FDA-Public Use
  Company Number: US-TEVA-600390USA

PATIENT
  Sex: Male

DRUGS (10)
  1. WELLBUTRIN [Concomitant]
     Active Substance: BUPROPION HYDROCHLORIDE
     Dates: start: 20150824
  2. OMEGA 3 [Concomitant]
     Active Substance: OMEGA-3 FATTY ACIDS
     Dates: start: 20140824
  3. BUPROPION. [Concomitant]
     Active Substance: BUPROPION
  4. VITAMIN D3 [Concomitant]
     Active Substance: CHOLECALCIFEROL
     Dates: start: 20150824
  5. COPAXONE [Suspect]
     Active Substance: GLATIRAMER ACETATE
     Indication: MULTIPLE SCLEROSIS
     Dosage: 17.1429 MILLIGRAM DAILY;
     Route: 058
     Dates: start: 20150904
  6. NORVASC [Concomitant]
     Active Substance: AMLODIPINE BESYLATE
     Dates: start: 20150824
  7. HYDROCHLOROT [Concomitant]
     Active Substance: HYDROCHLOROTHIAZIDE
     Dates: start: 20150824
  8. MAGNESIUM SU INJ [Concomitant]
     Dates: start: 20150824
  9. ACETAMIN SOL [Concomitant]
     Dosage: 160/5 ML
     Route: 065
     Dates: start: 20150824
  10. MULTIVITAMIN CHW [Concomitant]
     Dosage: UNKNOWN FORM STRENGTH
     Dates: start: 20150824

REACTIONS (1)
  - Injection site irritation [Recovered/Resolved]
